APPROVED DRUG PRODUCT: ZIAC
Active Ingredient: BISOPROLOL FUMARATE; HYDROCHLOROTHIAZIDE
Strength: 5MG;6.25MG
Dosage Form/Route: TABLET;ORAL
Application: N020186 | Product #001 | TE Code: AB
Applicant: TEVA BRANDED PHARMACEUTICAL PRODUCTS R AND D LLC
Approved: Mar 26, 1993 | RLD: Yes | RS: No | Type: RX